FAERS Safety Report 4513068-9 (Version None)
Quarter: 2004Q4

REPORT INFORMATION
  Report Type: 
  Country: None (occurrence: None)
  Receive Date: 20041124
  Receipt Date: 20041124
  Transmission Date: 20050328
  Serious: Yes (Life-Threatening, Hospitalization)
  Sender: FDA-Public Use
  Company Number: None

PATIENT
  Age: 58 Year
  Sex: Female
  Weight: 58 kg

DRUGS (5)
  1. ELOXATIN [Suspect]
     Indication: COLON CANCER METASTATIC
     Dates: start: 20020911, end: 20040825
  2. AVASTIN [Suspect]
     Indication: COLON CANCER METASTATIC
     Dates: start: 20040323, end: 20040825
  3. FLUOROURACIL [Concomitant]
  4. LEUCOVORIN [Concomitant]
  5. CHEMOTHERAPY [Concomitant]

REACTIONS (11)
  - ABDOMINAL DISCOMFORT [None]
  - ACUTE MYELOID LEUKAEMIA [None]
  - BONE MARROW DEPRESSION [None]
  - COUGH [None]
  - DISEASE RECURRENCE [None]
  - FEELING ABNORMAL [None]
  - HAEMOGLOBIN DECREASED [None]
  - PLATELET COUNT DECREASED [None]
  - PYREXIA [None]
  - RASH [None]
  - VIRAL INFECTION [None]
